FAERS Safety Report 8241970 (Version 3)
Quarter: 2013Q2

REPORT INFORMATION
  Report Type: Spontaneous
  Country: US (occurrence: US)
  Receive Date: 20111111
  Receipt Date: 20130501
  Transmission Date: 20140414
  Serious: Yes (Life-Threatening, Hospitalization)
  Sender: FDA-Public Use
  Company Number: PHEH2011US08204

PATIENT
  Age: 44 Year
  Sex: Female

DRUGS (30)
  1. GILENYA [Suspect]
     Indication: MULTIPLE SCLEROSIS
     Dosage: 0.5 MG, QD
     Route: 048
     Dates: start: 20110203
  2. GILENYA [Suspect]
     Dosage: UNK
  3. OXYCODONE [Concomitant]
     Dosage: 20 MG, Q12H
     Route: 048
  4. OXYCODONE [Concomitant]
     Dosage: 10 MG, UNK
     Route: 048
  5. DILAUDID [Concomitant]
  6. DILAUDID [Concomitant]
     Dosage: 2 MG, QD
     Route: 048
  7. KLONOPIN [Concomitant]
     Dosage: 0.5 MG, BID
     Route: 048
  8. OSCAL D [Concomitant]
     Dosage: 1 DF, BID
     Route: 048
  9. DELTASONE [Concomitant]
     Dosage: 20 MG, QD
     Route: 048
  10. DELTASONE [Concomitant]
     Dosage: 10 MG, QD
     Route: 048
  11. K-DUR [Concomitant]
     Dosage: 2 DF, DAILY
     Route: 048
  12. VITAMIN B COMPLEX [Concomitant]
     Dosage: 1 DF, DAILY
     Route: 048
  13. RUBRAMIN [Concomitant]
     Dosage: 1 ML, UNK
  14. CELEXA [Concomitant]
     Dosage: 40 MG, DAILY
     Route: 048
  15. ANTIVERT [Concomitant]
     Dosage: 25 MG, QID
  16. IMITREX [Concomitant]
     Dosage: 100 MG, BY MOUTH AS NEEDED
     Route: 048
  17. TOPAMAX [Concomitant]
     Dosage: 100 MG, BID
     Route: 048
  18. VICODIN [Concomitant]
     Dosage: 1 DF, Q4H
     Route: 048
  19. VALIUM [Concomitant]
     Dosage: 0.5 TO 1 TAB, Q6H
     Route: 048
  20. AMBIEN [Concomitant]
     Dosage: 1 DF, AT BED TIME
     Route: 048
  21. ZOCOR [Concomitant]
     Dosage: 1 DF, AT BED TIME
     Route: 048
  22. COMPAZINE [Concomitant]
     Indication: NAUSEA
     Dosage: 1 DF, Q8H
     Route: 048
  23. SYMBICORT [Concomitant]
     Dosage: BUDESONIDE 160UG, FORMOTEROL FUMARATE 4.5UG, 2 PUFFS BY MOUTH
     Route: 048
  24. NICOTROL [Concomitant]
     Dosage: 21 MG/ DAY
     Route: 062
  25. CLARITIN [Concomitant]
     Dosage: 10 MG, DAILY
     Route: 048
  26. VALTREX [Concomitant]
     Route: 048
  27. NEURONTIN [Concomitant]
  28. CITALOPRAM [Concomitant]
  29. PROAIR HFA [Concomitant]
     Dosage: 2 PUFFS BY MOUTH
  30. REGLAN [Concomitant]
     Dosage: 1 DF, QID
     Route: 048

REACTIONS (23)
  - Shock [Unknown]
  - Hypotension [Unknown]
  - Respiratory failure [Unknown]
  - Herpes simplex pneumonia [Unknown]
  - Chest pain [Not Recovered/Not Resolved]
  - Tachypnoea [Unknown]
  - Hypoxia [Unknown]
  - Hypercapnia [Unknown]
  - Respiratory distress [Unknown]
  - Haemorrhage [Unknown]
  - Somnolence [Unknown]
  - Leukocytosis [Unknown]
  - Pyrexia [Unknown]
  - Dyspnoea [Unknown]
  - Agitation [Unknown]
  - Muscular weakness [Unknown]
  - Hypoaesthesia [Unknown]
  - Anaemia [Unknown]
  - Simplex virus test positive [Recovered/Resolved]
  - Extraocular muscle paresis [Unknown]
  - Hypokalaemia [Unknown]
  - Drug dependence [Unknown]
  - Diarrhoea [Unknown]
